FAERS Safety Report 9921765 (Version 1)
Quarter: 2014Q1

REPORT INFORMATION
  Report Type: Spontaneous
  Country: US (occurrence: None)
  Receive Date: 20140221
  Receipt Date: 20140221
  Transmission Date: 20141002
  Serious: No
  Sender: FDA-Public Use
  Company Number: None

PATIENT
  Age: 70 Year
  Sex: Female
  Weight: 70.31 kg

DRUGS (7)
  1. HYDROCORTISONE [Suspect]
     Indication: SKIN BURNING SENSATION
     Dosage: APPLY TWICE DAILY SMEAR ON SKIN-BURNED
     Dates: start: 20140124, end: 20140127
  2. BENADRLY + SILVER SULFADINE [Concomitant]
  3. MULTI-VIT [Concomitant]
  4. CALCIUM [Concomitant]
  5. D3 [Concomitant]
  6. NIACIN [Concomitant]
  7. OMEGA [Concomitant]

REACTIONS (2)
  - Swelling face [None]
  - Eye swelling [None]
